FAERS Safety Report 12742684 (Version 1)
Quarter: 2016Q3

REPORT INFORMATION
  Report Type: Spontaneous
  Country: US (occurrence: US)
  Receive Date: 20160914
  Receipt Date: 20160914
  Transmission Date: 20161109
  Serious: Yes (Life-Threatening, Hospitalization)
  Sender: FDA-Public Use
  Company Number: PHHY2016US124678

PATIENT
  Age: 32 Year
  Sex: Male

DRUGS (1)
  1. TRAMETINIB [Suspect]
     Active Substance: TRAMETINIB
     Indication: METASTATIC MALIGNANT MELANOMA
     Route: 048

REACTIONS (10)
  - Ventricular hypokinesia [Unknown]
  - Hypotension [Unknown]
  - Cardiogenic shock [Unknown]
  - Staphylococcal infection [Unknown]
  - Cough [Unknown]
  - Hypoxia [Unknown]
  - Pneumonia klebsiella [Unknown]
  - Tachycardia [Unknown]
  - Pneumonia respiratory syncytial viral [Unknown]
  - Dyspnoea [Unknown]
